FAERS Safety Report 17617808 (Version 1)
Quarter: 2020Q2

REPORT INFORMATION
  Report Type: Spontaneous
  Country: US (occurrence: US)
  Receive Date: 20200402
  Receipt Date: 20200402
  Transmission Date: 20200713
  Serious: Yes (Other)
  Sender: FDA-Public Use
  Company Number: US-PFIZER INC-2020044532

PATIENT
  Age: 57 Year
  Sex: Female
  Weight: 106.8 kg

DRUGS (1)
  1. ANBESOL MAXIMUM STRENGTH [Suspect]
     Active Substance: BENZOCAINE
     Indication: TOOTHACHE
     Dosage: 1 DF, 4X/DAY (APPLY A PEA SIZE AMOUNT TO AFFECTED AREA UP TO 4 TIMES A DAY)
     Dates: start: 20200128, end: 20200128

REACTIONS (9)
  - Oral mucosal exfoliation [Recovered/Resolved]
  - Tooth abscess [Unknown]
  - Stomatitis [Recovered/Resolved]
  - Burn oral cavity [Unknown]
  - Burning sensation [Recovered/Resolved]
  - Product complaint [Recovered/Resolved]
  - Pharyngitis [Unknown]
  - Sinusitis [Unknown]
  - Bursitis [Unknown]

NARRATIVE: CASE EVENT DATE: 2020
